FAERS Safety Report 7024806-8 (Version None)
Quarter: 2010Q4

REPORT INFORMATION
  Report Type: 
  Country: None (occurrence: None)
  Receive Date: 20101001
  Receipt Date: 20100903
  Transmission Date: 20110411
  Serious: No
  Sender: FDA-Public Use
  Company Number: US-BAYER-201019818BCC

PATIENT
  Age: 31 Year
  Sex: Female
  Weight: 62 kg

DRUGS (3)
  1. MIDOL EXTENDED RELIEF [Suspect]
     Indication: DYSMENORRHOEA
     Dosage: TOOK FIRST ON THE MORNING AND THEN AGAIN IN THE EVENING
     Route: 048
     Dates: start: 20100831, end: 20100831
  2. MIDOL EXTENDED RELIEF [Suspect]
     Dosage: UNIT DOSE: 220 MG
     Route: 048
     Dates: start: 20100901
  3. PERCOCET [Concomitant]
     Route: 065
     Dates: start: 20100801

REACTIONS (3)
  - FAECES DISCOLOURED [None]
  - FLATULENCE [None]
  - GASTROINTESTINAL PAIN [None]
